FAERS Safety Report 15635810 (Version 7)
Quarter: 2024Q4

REPORT INFORMATION
  Report Type: Report from Study
  Country: JP (occurrence: JP)
  Receive Date: 20181120
  Receipt Date: 20241227
  Transmission Date: 20250114
  Serious: Yes (Hospitalization, Disabling)
  Sender: ABBVIE
  Company Number: JP-ABBVIE-18S-087-2559264-00

PATIENT
  Age: 72 Year
  Sex: Female
  Weight: 30 kg

DRUGS (4)
  1. CARBIDOPA\LEVODOPA [Suspect]
     Active Substance: CARBIDOPA\LEVODOPA
     Indication: Parkinson^s disease
     Dosage: MD: 9 ML, CD: 1.1 ML/HR ? 15 HRS, ED: 1.0 ML/UNIT ? 3
     Route: 050
     Dates: start: 20180815, end: 20181030
  2. CARBIDOPA\LEVODOPA [Suspect]
     Active Substance: CARBIDOPA\LEVODOPA
     Route: 050
     Dates: start: 20190926
  3. NEUPRO [Concomitant]
     Active Substance: ROTIGOTINE
     Indication: Parkinson^s disease
     Route: 062
     Dates: end: 20181030
  4. PREDNISOLONE [Concomitant]
     Active Substance: PREDNISOLONE
     Indication: Product used for unknown indication
     Route: 048
     Dates: end: 20181030

REACTIONS (6)
  - Femur fracture [Recovered/Resolved with Sequelae]
  - Femur fracture [Unknown]
  - Fall [Unknown]
  - Hallucination, visual [Recovering/Resolving]
  - Nausea [Recovered/Resolved]
  - Dyskinesia [Not Recovered/Not Resolved]

NARRATIVE: CASE EVENT DATE: 20180101
